FAERS Safety Report 19172241 (Version 1)
Quarter: 2021Q2

REPORT INFORMATION
  Report Type: Spontaneous
  Country: US (occurrence: US)
  Receive Date: 20210423
  Receipt Date: 20210423
  Transmission Date: 20210717
  Serious: No
  Sender: FDA-Public Use
  Company Number: US-TEVA-2021-US-1901944

PATIENT
  Sex: Female

DRUGS (1)
  1. QVAR REDIHALER [Suspect]
     Active Substance: BECLOMETHASONE DIPROPIONATE
     Indication: ASTHMA
     Dosage: 2 PUFFS TWICE A DAY/PRESCRIBED QVAR REDIHALER ABOUT 3?5 YEARS AGO
     Route: 065

REACTIONS (4)
  - Wheezing [Unknown]
  - Cough [Unknown]
  - Malaise [Recovered/Resolved]
  - Productive cough [Unknown]
